FAERS Safety Report 25784990 (Version 1)
Quarter: 2025Q3

REPORT INFORMATION
  Report Type: Spontaneous
  Country: US (occurrence: US)
  Receive Date: 20250910
  Receipt Date: 20250910
  Transmission Date: 20251021
  Serious: Yes (Other)
  Sender: CHIESI
  Company Number: US-CHIESI-2025CHF04940

PATIENT
  Sex: Male
  Weight: 5.5 kg

DRUGS (2)
  1. CUROSURF [Suspect]
     Active Substance: PORACTANT ALFA
     Indication: Meconium aspiration syndrome
     Route: 007
     Dates: start: 202507, end: 20250715
  2. CUROSURF [Suspect]
     Active Substance: PORACTANT ALFA
     Indication: Off label use

REACTIONS (4)
  - Endotracheal intubation complication [Recovered/Resolved]
  - Product deposit [Not Recovered/Not Resolved]
  - Off label use [Recovered/Resolved]
  - Off label use [Recovered/Resolved]

NARRATIVE: CASE EVENT DATE: 20250701
